FAERS Safety Report 24252482 (Version 1)
Quarter: 2024Q3

REPORT INFORMATION
  Report Type: Spontaneous
  Country: US (occurrence: US)
  Receive Date: 20240827
  Receipt Date: 20240827
  Transmission Date: 20241016
  Serious: Yes (Life-Threatening, Hospitalization, Other)
  Sender: ENDO
  Company Number: US-ENDO USA, INC.-2024-003203

PATIENT
  Age: 29 Year
  Sex: Male

DRUGS (1)
  1. DEXTROAMPHET SACCHARAT, AMPHET ASPARTATE, DEXTROAMPHET SULFATE AND AMP [Suspect]
     Active Substance: AMPHETAMINE ASPARTATE\AMPHETAMINE SULFATE\DEXTROAMPHETAMINE SACCHARATE\DEXTROAMPHETAMINE SULFATE
     Indication: Attention deficit hyperactivity disorder
     Dosage: 120 MILLIGRAM, DAILY
     Route: 065

REACTIONS (4)
  - Cardiogenic shock [Recovered/Resolved]
  - Acute respiratory failure [Recovered/Resolved]
  - Drug interaction [Recovered/Resolved]
  - Prescribed overdose [Unknown]
